FAERS Safety Report 24731866 (Version 1)
Quarter: 2024Q4

REPORT INFORMATION
  Report Type: Spontaneous
  Country: US (occurrence: None)
  Receive Date: 20241213
  Receipt Date: 20241213
  Transmission Date: 20250115
  Serious: Yes (Life-Threatening, Hospitalization)
  Sender: Public
  Company Number: None

PATIENT
  Age: 73 Year
  Sex: Male
  Weight: 93 kg

DRUGS (1)
  1. RITUXIMAB [Suspect]
     Active Substance: RITUXIMAB
     Indication: B-cell lymphoma
     Dates: start: 20241209, end: 20241209

REACTIONS (6)
  - Petechiae [None]
  - Dyspnoea [None]
  - Back pain [None]
  - White blood cell count increased [None]
  - Hypoxia [None]
  - Drug ineffective [None]

NARRATIVE: CASE EVENT DATE: 20241210
